FAERS Safety Report 13574242 (Version 1)
Quarter: 2017Q2

REPORT INFORMATION
  Report Type: Spontaneous
  Country: CA (occurrence: CA)
  Receive Date: 20170523
  Receipt Date: 20170523
  Transmission Date: 20170830
  Serious: Yes (Hospitalization)
  Sender: FDA-Public Use
  Company Number: CA-ASTRAZENECA-2017SE51468

PATIENT
  Age: 16873 Day
  Sex: Male

DRUGS (11)
  1. LISINOPRIL. [Concomitant]
     Active Substance: LISINOPRIL
  2. HYDROCHLOROTHIAZIDE. [Concomitant]
     Active Substance: HYDROCHLOROTHIAZIDE
  3. VITAMIN D [Concomitant]
     Active Substance: CHOLECALCIFEROL
  4. LEVEMIR [Concomitant]
     Active Substance: INSULIN DETEMIR
  5. ROSUVASTATIN. [Concomitant]
     Active Substance: ROSUVASTATIN
  6. GLUCOSAMINE [Concomitant]
     Active Substance: GLUCOSAMINE
  7. JANUMET [Concomitant]
     Active Substance: METFORMIN HYDROCHLORIDE\SITAGLIPTIN PHOSPHATE
  8. ASACOL [Concomitant]
     Active Substance: MESALAMINE
  9. BISOPROLOL [Concomitant]
     Active Substance: BISOPROLOL
  10. PANTOLOC [Concomitant]
     Active Substance: PANTOPRAZOLE SODIUM
  11. FORXIGA [Suspect]
     Active Substance: DAPAGLIFLOZIN
     Route: 048

REACTIONS (1)
  - Pancreatitis [Unknown]

NARRATIVE: CASE EVENT DATE: 20161220
